FAERS Safety Report 20335643 (Version 1)
Quarter: 2022Q1

REPORT INFORMATION
  Report Type: Spontaneous
  Country: CL (occurrence: CL)
  Receive Date: 20220114
  Receipt Date: 20220114
  Transmission Date: 20220423
  Serious: Yes (Other)
  Sender: FDA-Public Use
  Company Number: CL-NOVARTISPH-NVSC2022CL006742

PATIENT
  Sex: Male

DRUGS (1)
  1. NILOTINIB [Suspect]
     Active Substance: NILOTINIB
     Indication: Chronic myeloid leukaemia
     Dosage: 300 MG, BID (VIA MOUTH)
     Route: 048
     Dates: start: 2017

REACTIONS (2)
  - Diffuse large B-cell lymphoma [Recovered/Resolved]
  - Second primary malignancy [Unknown]

NARRATIVE: CASE EVENT DATE: 20200101
